FAERS Safety Report 7434194-0 (Version None)
Quarter: 2011Q2

REPORT INFORMATION
  Report Type: 
  Country: None (occurrence: None)
  Receive Date: 20110425
  Receipt Date: 20110418
  Transmission Date: 20111010
  Serious: No
  Sender: FDA-Public Use
  Company Number: US-PFIZER INC-2011085305

PATIENT
  Sex: Female

DRUGS (3)
  1. PANTOPRAZOLE [Suspect]
     Indication: GASTROOESOPHAGEAL REFLUX DISEASE
     Dosage: 40 MG, 2X/DAY
     Dates: start: 20110201
  2. PROTONIX [Concomitant]
     Indication: GASTROOESOPHAGEAL REFLUX DISEASE
     Dosage: 40 MG, 2X/DAY (ON AND OFF)
  3. HYOMAX [Concomitant]
     Indication: IRRITABLE BOWEL SYNDROME
     Dosage: 0.125 MG (FREQUENCY UNKNOWN)

REACTIONS (6)
  - DYSPEPSIA [None]
  - ABDOMINAL DISTENSION [None]
  - GENERALISED OEDEMA [None]
  - ABDOMINAL DISCOMFORT [None]
  - STRESS [None]
  - PAIN IN EXTREMITY [None]
